FAERS Safety Report 13310572 (Version 2)
Quarter: 2017Q2

REPORT INFORMATION
  Report Type: Spontaneous
  Country: US (occurrence: US)
  Receive Date: 20170309
  Receipt Date: 20170512
  Transmission Date: 20170830
  Serious: No
  Sender: FDA-Public Use
  Company Number: US-JNJFOC-20170115022

PATIENT
  Sex: Male

DRUGS (13)
  1. RISPERIDONE. [Suspect]
     Active Substance: RISPERIDONE
     Indication: AGITATION
     Route: 048
  2. RISPERIDONE. [Suspect]
     Active Substance: RISPERIDONE
     Indication: ANGER
     Route: 048
  3. RISPERIDONE. [Suspect]
     Active Substance: RISPERIDONE
     Indication: IRRITABILITY
     Route: 048
  4. INVEGA [Suspect]
     Active Substance: PALIPERIDONE
     Indication: PRODUCT USED FOR UNKNOWN INDICATION
     Route: 048
  5. WELLBUTRIN [Suspect]
     Active Substance: BUPROPION HYDROCHLORIDE
     Indication: ANXIETY
     Route: 048
  6. WELLBUTRIN [Suspect]
     Active Substance: BUPROPION HYDROCHLORIDE
     Indication: AFFECTIVE DISORDER
     Route: 048
  7. RISPERIDONE. [Suspect]
     Active Substance: RISPERIDONE
     Indication: MOOD SWINGS
     Route: 048
  8. RISPERIDONE. [Suspect]
     Active Substance: RISPERIDONE
     Indication: SLEEP DISORDER
     Route: 048
  9. WELLBUTRIN [Suspect]
     Active Substance: BUPROPION HYDROCHLORIDE
     Indication: IRRITABILITY
     Route: 048
  10. RISPERIDONE M-TAB [Suspect]
     Active Substance: RISPERIDONE
     Indication: PRODUCT USED FOR UNKNOWN INDICATION
     Route: 048
  11. WELLBUTRIN [Suspect]
     Active Substance: BUPROPION HYDROCHLORIDE
     Indication: DISTRACTIBILITY
     Route: 048
  12. RISPERDAL [Suspect]
     Active Substance: RISPERIDONE
     Indication: PRODUCT USED FOR UNKNOWN INDICATION
     Route: 048
  13. WELLBUTRIN [Suspect]
     Active Substance: BUPROPION HYDROCHLORIDE
     Indication: DISTURBANCE IN ATTENTION
     Route: 048

REACTIONS (4)
  - Irritability [Recovering/Resolving]
  - Restlessness [Recovering/Resolving]
  - Dyskinesia [Recovering/Resolving]
  - Muscle tightness [Unknown]

NARRATIVE: CASE EVENT DATE: 2006
